FAERS Safety Report 17461654 (Version 1)
Quarter: 2020Q1

REPORT INFORMATION
  Report Type: Spontaneous
  Country: JP (occurrence: JP)
  Receive Date: 20200226
  Receipt Date: 20200226
  Transmission Date: 20200409
  Serious: Yes (Hospitalization)
  Sender: FDA-Public Use
  Company Number: JP-EISAI MEDICAL RESEARCH-EC-2020-070491

PATIENT
  Age: 76 Year
  Sex: Female

DRUGS (1)
  1. DONEPEZIL. [Suspect]
     Active Substance: DONEPEZIL
     Indication: DEMENTIA WITH LEWY BODIES
     Dosage: DOSE AND FREQUENCY UNKNOWN
     Route: 048

REACTIONS (9)
  - Cognitive disorder [Unknown]
  - Respiratory alkalosis [Unknown]
  - Stupor [Recovering/Resolving]
  - Extrapyramidal disorder [Unknown]
  - Generalised tonic-clonic seizure [Unknown]
  - Hyperventilation [Unknown]
  - Cerebral disorder [Unknown]
  - Rhabdomyolysis [Unknown]
  - Tremor [Unknown]
